FAERS Safety Report 7391342-9 (Version None)
Quarter: 2011Q2

REPORT INFORMATION
  Report Type: 
  Country: None (occurrence: None)
  Receive Date: 20110404
  Receipt Date: 20110324
  Transmission Date: 20111010
  Serious: Yes (Other)
  Sender: FDA-Public Use
  Company Number: ZA-BRISTOL-MYERS SQUIBB COMPANY-15649627

PATIENT
  Age: 70 Year
  Sex: Female

DRUGS (5)
  1. LANTUS [Suspect]
     Indication: DIABETES MELLITUS
     Dosage: NOCTE,EVERY NIGHT
     Dates: start: 20110305
  2. CRESTOR [Concomitant]
     Indication: BLOOD CHOLESTEROL INCREASED
  3. ELTROXIN [Concomitant]
     Indication: HYPOTHYROIDISM
  4. GLUCOPHAGE [Suspect]
     Indication: DIABETES MELLITUS
  5. GLICLAZIDE [Concomitant]
     Indication: DIABETES MELLITUS

REACTIONS (3)
  - RENAL DISORDER [None]
  - DYSPNOEA [None]
  - PRURITUS [None]
